FAERS Safety Report 9345667 (Version 1)
Quarter: 2013Q2

REPORT INFORMATION
  Report Type: Report from Study
  Country: US (occurrence: US)
  Receive Date: 20130613
  Receipt Date: 20130613
  Transmission Date: 20140414
  Serious: Yes (Other)
  Sender: FDA-Public Use
  Company Number: PHEH2013US012518

PATIENT
  Sex: 0

DRUGS (1)
  1. AFINITOR [Suspect]

REACTIONS (3)
  - Angiofibroma [Unknown]
  - Erythema [Unknown]
  - Infection [Unknown]
